FAERS Safety Report 23232929 (Version 1)
Quarter: 2023Q4

REPORT INFORMATION
  Report Type: Report from Study
  Country: US (occurrence: US)
  Receive Date: 20231128
  Receipt Date: 20231128
  Transmission Date: 20240110
  Serious: Yes (Life-Threatening, Hospitalization, Other)
  Sender: FDA-Public Use
  Company Number: US-SA-SAC20231123000014

PATIENT
  Age: 66 Year
  Sex: Male

DRUGS (17)
  1. DOCETAXEL [Suspect]
     Active Substance: DOCETAXEL\DOCETAXEL ANHYDROUS
     Indication: Non-small cell lung cancer
     Dosage: \152 MG ADMINISTERED IV ON DAY 5 EVERY 21 DAYS.
     Route: 042
     Dates: start: 20221021
  2. DOCETAXEL [Suspect]
     Active Substance: DOCETAXEL\DOCETAXEL ANHYDROUS
     Dosage: RESTARTED AT A REDUCED DOSE
     Dates: start: 20221223, end: 20230112
  3. OBINUTUZUMAB [Suspect]
     Active Substance: OBINUTUZUMAB
     Indication: Non-small cell lung cancer
     Dosage: 1000 MG
     Route: 042
     Dates: start: 20221004
  4. ESCITALOPRAM [Concomitant]
     Active Substance: ESCITALOPRAM OXALATE
     Indication: Anxiety
     Dosage: 25 MG, QD
     Route: 048
     Dates: start: 200506
  5. ESCITALOPRAM [Concomitant]
     Active Substance: ESCITALOPRAM OXALATE
     Indication: Depression
  6. TRAMADOL [Concomitant]
     Active Substance: TRAMADOL\TRAMADOL HYDROCHLORIDE
     Indication: Pathological fracture
     Dosage: 100 MG, Q6H
     Route: 048
     Dates: start: 20220816
  7. TRAMADOL [Concomitant]
     Active Substance: TRAMADOL\TRAMADOL HYDROCHLORIDE
     Dosage: 200 MG, QD
     Route: 048
     Dates: start: 20220816
  8. XARELTO [Concomitant]
     Active Substance: RIVAROXABAN
     Indication: Hypertension
     Dosage: 20 MG, QD
     Route: 048
     Dates: start: 20220920
  9. ALBUTEROL SULFATE [Concomitant]
     Active Substance: ALBUTEROL SULFATE
     Indication: Chronic obstructive pulmonary disease
     Dosage: 90 MCG
     Route: 055
     Dates: start: 201605
  10. OMEPRAZOLE [Concomitant]
     Active Substance: OMEPRAZOLE
     Indication: Gastrooesophageal reflux disease
     Dosage: 40 MG, QD AS NEEDED
     Route: 048
     Dates: start: 200504
  11. TYLENOL [Concomitant]
     Active Substance: ACETAMINOPHEN
     Indication: Pathological fracture
     Dosage: 650 MG, Q4H
     Route: 048
     Dates: start: 20220816
  12. LACTULOSE [Concomitant]
     Active Substance: LACTULOSE
     Indication: Constipation
     Dosage: 20 ML, Q2H AS NEEDED
     Route: 048
     Dates: start: 20221022
  13. DEXAMETHASONE [Concomitant]
     Active Substance: DEXAMETHASONE
     Indication: Prophylaxis
     Dosage: 8 MG , BID
     Route: 048
     Dates: start: 20221020
  14. HYCODAN [HOMATROPINE METHYLBROMIDE;HYDROCODONE BITARTRATE] [Concomitant]
     Indication: Cough
     Dosage: 5 ML ORALLY EVERY 4-6 HOURS AS NEEDED
     Dates: start: 20221013
  15. BENZONATATE [Concomitant]
     Active Substance: BENZONATATE
     Indication: Cough
     Dosage: 100 MG ORALLY THREE TIMES DAILY AS NEEDED
     Route: 048
     Dates: start: 20221025
  16. AZITHROMYCIN [Concomitant]
     Active Substance: AZITHROMYCIN
     Indication: Cough
     Dosage: 500 MG ORALLY ONCE DAILY FOR 5 DAYS
     Route: 048
     Dates: start: 20221025, end: 20221028
  17. CEFPODOXIME [Concomitant]
     Active Substance: CEFPODOXIME
     Indication: Cough
     Dosage: 200 MG ORALLY TWICE A DAY
     Route: 048
     Dates: start: 20221025, end: 20221028

REACTIONS (2)
  - Hypervolaemia [Recovered/Resolved]
  - Pneumonia [Recovered/Resolved]

NARRATIVE: CASE EVENT DATE: 20221028
